FAERS Safety Report 20307872 (Version 2)
Quarter: 2022Q1

REPORT INFORMATION
  Report Type: Spontaneous
  Country: US (occurrence: US)
  Receive Date: 20220107
  Receipt Date: 20220201
  Transmission Date: 20220423
  Serious: No
  Sender: FDA-Public Use
  Company Number: US-APOTEX-2021AP046957

PATIENT
  Sex: Female

DRUGS (7)
  1. IPRATROPIUM BROMIDE [Suspect]
     Active Substance: IPRATROPIUM BROMIDE
     Indication: Rhinorrhoea
     Dosage: 4 DOSAGE FORM, BID (2 SPRAYS ON EACH NOSTRIL TWICE A DAY)
     Route: 045
  2. IPRATROPIUM BROMIDE [Suspect]
     Active Substance: IPRATROPIUM BROMIDE
     Dosage: 4 DOSAGE FORM, TID (2 SPRAYS ON EACH NOSTRIL THREE TIMES A DAY)
     Route: 045
  3. IPRATROPIUM BROMIDE [Suspect]
     Active Substance: IPRATROPIUM BROMIDE
     Dosage: 4 DOSAGE FORM, BID (2 SPRAYS ON EACH NOSTRIL TWICE A DAY)
     Route: 045
  4. OMEPRAZOLE [Concomitant]
     Active Substance: OMEPRAZOLE
     Indication: Gastrointestinal disorder
     Dosage: 1 DOSAGE FORM (10 MG OR 20 MG), QD
     Route: 065
  5. ATORVASTATIN [Concomitant]
     Active Substance: ATORVASTATIN
     Indication: Blood cholesterol abnormal
     Dosage: 1 DOSAGE FORM, QD
     Route: 065
  6. SECTRAL [Concomitant]
     Active Substance: ACEBUTOLOL HYDROCHLORIDE
     Indication: Heart rate abnormal
     Dosage: 1 DOSAGE FORM, QD
     Route: 065
  7. SECTRAL [Concomitant]
     Active Substance: ACEBUTOLOL HYDROCHLORIDE
     Indication: Blood pressure abnormal

REACTIONS (5)
  - Drug delivery system malfunction [Unknown]
  - Product after taste [Unknown]
  - Incorrect dose administered by device [Unknown]
  - No adverse event [Unknown]
  - Drug ineffective [Unknown]

NARRATIVE: CASE EVENT DATE: 20210101
